FAERS Safety Report 10098273 (Version 1)
Quarter: 2014Q2

REPORT INFORMATION
  Report Type: Spontaneous
  Country: US (occurrence: None)
  Receive Date: 20140422
  Receipt Date: 20140422
  Transmission Date: 20141212
  Serious: Yes (Other)
  Sender: FDA-Public Use
  Company Number: None

PATIENT
  Age: 63 Year
  Sex: Male
  Weight: 73.4 kg

DRUGS (1)
  1. SUCCINYLCHOLINE [Suspect]
     Dates: start: 20131025, end: 20131025

REACTIONS (1)
  - Drug effect prolonged [None]
